FAERS Safety Report 9543440 (Version 1)
Quarter: 2013Q3

REPORT INFORMATION
  Report Type: Spontaneous
  Country: US (occurrence: US)
  Receive Date: 20130923
  Receipt Date: 20130923
  Transmission Date: 20140515
  Serious: Yes (Other)
  Sender: FDA-Public Use
  Company Number: US-PFIZER INC-2013271804

PATIENT
  Age: 63 Year
  Sex: Female

DRUGS (2)
  1. ADVIL [Suspect]
     Indication: PAIN
     Dosage: UNK
  2. ADVIL [Suspect]
     Indication: HEADACHE
     Dosage: TWO TABLETS AT A TIME

REACTIONS (10)
  - Cerebrovascular accident [Unknown]
  - Body height decreased [Unknown]
  - Impatience [Unknown]
  - Drug ineffective [Unknown]
  - Back pain [Unknown]
  - Gait disturbance [Unknown]
  - Dysstasia [Unknown]
  - Nerve injury [Unknown]
  - Stress [Unknown]
  - Malaise [Unknown]
